FAERS Safety Report 9361457 (Version 1)
Quarter: 2013Q2

REPORT INFORMATION
  Report Type: Spontaneous
  Country: US (occurrence: US)
  Receive Date: 20130621
  Receipt Date: 20130621
  Transmission Date: 20140414
  Serious: Yes (Hospitalization)
  Sender: FDA-Public Use
  Company Number: US-US-EMD SERONO, INC.-7153717

PATIENT
  Age: 33 Year
  Sex: Female

DRUGS (5)
  1. REBIF [Suspect]
     Indication: RELAPSING-REMITTING MULTIPLE SCLEROSIS
     Dates: start: 201009, end: 201208
  2. ABILIFY [Concomitant]
     Indication: DEPRESSION
  3. TRAZODONE [Concomitant]
     Indication: DEPRESSION
  4. EFFEXOR [Concomitant]
     Indication: DEPRESSION
  5. HYDROCHLOROTHIAZIDE [Concomitant]
     Indication: HYPERTENSION

REACTIONS (1)
  - Thrombotic thrombocytopenic purpura [Recovering/Resolving]
